FAERS Safety Report 8100348-3 (Version None)
Quarter: 2012Q1

REPORT INFORMATION
  Report Type: 
  Country: None (occurrence: None)
  Receive Date: 20120129
  Receipt Date: 20111123
  Transmission Date: 20120608
  Serious: No
  Sender: FDA-Public Use
  Company Number: US-ABBOTT-11P-163-0877761-00

PATIENT
  Sex: Female

DRUGS (1)
  1. HUMIRA [Suspect]
     Indication: RHEUMATOID ARTHRITIS
     Route: 058
     Dates: start: 20110801

REACTIONS (7)
  - FEELING COLD [None]
  - OPEN WOUND [None]
  - PAIN [None]
  - FEELING HOT [None]
  - FATIGUE [None]
  - RASH [None]
  - INJECTION SITE PAIN [None]
